FAERS Safety Report 5075467-9 (Version None)
Quarter: 2006Q3

REPORT INFORMATION
  Report Type: 
  Country: None (occurrence: None)
  Receive Date: 20060809
  Receipt Date: 20060731
  Transmission Date: 20061208
  Serious: Yes (Other)
  Sender: FDA-Public Use
  Company Number: 2006AC01407

PATIENT
  Age: 17 Month
  Sex: Male
  Weight: 10 kg

DRUGS (9)
  1. BUPIVACAINE [Suspect]
     Indication: EPIDURAL ANAESTHESIA
     Dosage: BOLUS
     Route: 008
  2. BUPIVACAINE [Suspect]
     Dosage: CONTINUOUS INFUSION.
     Route: 008
  3. BUPIVACAINE [Suspect]
     Dosage: INFUSION INCREASED IN POST ANAESTHESIA CARE UNIT.
     Route: 008
  4. BUPIVACAINE [Suspect]
     Dosage: INFUSION DECREASED 17 HOURS POSTOPERATIVELY.
     Route: 008
  5. FENTANYL [Suspect]
     Indication: EPIDURAL ANAESTHESIA
     Dosage: CONTINUOUS INFUSION. 0.25 MG/KG/H
     Route: 008
  6. FENTANYL [Suspect]
     Dosage: INFUSION INCREASED IN POST ANAESTHESIA CARE UNIT.
     Route: 008
  7. FENTANYL [Suspect]
     Dosage: INFUSION DECREASED 17 HOURS POSTOPERATIVELY.
     Route: 008
  8. NALOXONE [Concomitant]
     Indication: PRURITUS
     Dosage: 1 MCG/KG/H
     Route: 042
  9. NALOXONE [Concomitant]
     Dosage: 1 MCG/KG/H
     Route: 042

REACTIONS (4)
  - CATHETER RELATED COMPLICATION [None]
  - HORNER'S SYNDROME [None]
  - MUSCULAR WEAKNESS [None]
  - PRURITUS [None]
